FAERS Safety Report 16677111 (Version 1)
Quarter: 2019Q3

REPORT INFORMATION
  Report Type: Spontaneous
  Country: JP (occurrence: JP)
  Receive Date: 20190807
  Receipt Date: 20190807
  Transmission Date: 20191004
  Serious: Yes (Other)
  Sender: FDA-Public Use
  Company Number: JP-JNJFOC-20190714187

PATIENT
  Age: 67 Year
  Sex: Male

DRUGS (4)
  1. ANCOTIL [Concomitant]
     Active Substance: FLUCYTOSINE
     Indication: ASPERGILLUS INFECTION
     Route: 048
  2. ITRIZOLE [Suspect]
     Active Substance: ITRACONAZOLE
     Indication: ASPERGILLUS INFECTION
     Dosage: ITRACONAZOLE:10MG/ML
     Route: 048
     Dates: start: 20190307, end: 20190704
  3. VORICONAZOLE. [Suspect]
     Active Substance: VORICONAZOLE
     Route: 065
     Dates: start: 20190704
  4. VORICONAZOLE. [Suspect]
     Active Substance: VORICONAZOLE
     Indication: ASPERGILLUS INFECTION
     Route: 065
     Dates: start: 20190306

REACTIONS (1)
  - Cataract [Not Recovered/Not Resolved]

NARRATIVE: CASE EVENT DATE: 20190307
